FAERS Safety Report 25913914 (Version 2)
Quarter: 2025Q4

REPORT INFORMATION
  Report Type: Report from Study
  Country: US (occurrence: US)
  Receive Date: 20251013
  Receipt Date: 20251121
  Transmission Date: 20260118
  Serious: No
  Sender: MALLINCKRODT
  Company Number: US-MALLINCKRODT-MNK202506377

PATIENT
  Age: 74 Year
  Sex: Male

DRUGS (1)
  1. CORTICOTROPIN [Suspect]
     Active Substance: CORTICOTROPIN
     Indication: Sympathetic ophthalmia
     Dosage: 40 UNITS
     Route: 058
     Dates: start: 20250813

REACTIONS (3)
  - White blood cell count increased [Unknown]
  - Viral infection [Unknown]
  - Hookworm infection [Unknown]

NARRATIVE: CASE EVENT DATE: 20250101
